FAERS Safety Report 6312787-1 (Version None)
Quarter: 2009Q3

REPORT INFORMATION
  Report Type: 
  Country: None (occurrence: None)
  Receive Date: 20090814
  Receipt Date: 20090520
  Transmission Date: 20100115
  Serious: Yes (Hospitalization)
  Sender: FDA-Public Use
  Company Number: 1000006373

PATIENT
  Age: 62 Year
  Sex: Female
  Weight: 112.9457 kg

DRUGS (18)
  1. THYROID TAB [Suspect]
     Indication: HYPOTHYROIDISM
     Dosage: 180 MG (90 MG, 2 IN 1 D), ORAL
     Route: 048
     Dates: start: 20020101
  2. CP-690,550/PLACEBO [Suspect]
     Indication: PSORIASIS
     Dosage: ORAL
     Route: 048
     Dates: start: 20090325, end: 20090408
  3. HALCION [Concomitant]
  4. VENLAFAXINE HCL [Concomitant]
  5. XANAX [Concomitant]
  6. ALBUTEROL (INHALANT) [Concomitant]
  7. ADVAIR HFA [Concomitant]
  8. LISINOPRIL [Concomitant]
  9. METOPROLOL SUCCINATE [Concomitant]
  10. HYDROCODONE [Concomitant]
  11. PRILOSEC [Concomitant]
  12. BENADRYL [Concomitant]
  13. FUROSEMIDE [Concomitant]
  14. ZETIA [Concomitant]
  15. REGLAN [Concomitant]
  16. ASPIRIN [Concomitant]
  17. PEPTO-BISMOL [Concomitant]
  18. LIBRAX [Concomitant]

REACTIONS (8)
  - AORTITIS [None]
  - ATRIAL FIBRILLATION [None]
  - BACK PAIN [None]
  - ENTEROBACTER INFECTION [None]
  - OSTEOARTHRITIS [None]
  - PYELONEPHRITIS [None]
  - SEASONAL ALLERGY [None]
  - UROSEPSIS [None]
